FAERS Safety Report 24263673 (Version 1)
Quarter: 2024Q3

REPORT INFORMATION
  Report Type: Report from Study
  Country: US (occurrence: US)
  Receive Date: 20240829
  Receipt Date: 20240829
  Transmission Date: 20241016
  Serious: Yes (Hospitalization)
  Sender: ROCHE
  Company Number: US-ROCHE-3498948

PATIENT
  Age: 76 Year
  Sex: Female
  Weight: 73.48 kg

DRUGS (2)
  1. ESBRIET [Suspect]
     Active Substance: PIRFENIDONE
     Indication: Idiopathic pulmonary fibrosis
     Route: 048
     Dates: start: 2023, end: 2023
  2. ESBRIET [Suspect]
     Active Substance: PIRFENIDONE
     Dosage: PATIENT WAS TAKING THREE TABLETS THREE TIMES A DAY. UNSURE OF DOSE. REPORTS TABLET IS YELLOW
     Route: 048
     Dates: start: 202401, end: 202404

REACTIONS (6)
  - Illness [Unknown]
  - Influenza like illness [Unknown]
  - Vertigo [Unknown]
  - Rhinorrhoea [Recovered/Resolved]
  - Cough [Recovered/Resolved]
  - Diarrhoea [Recovered/Resolved]

NARRATIVE: CASE EVENT DATE: 20230101
